FAERS Safety Report 4324482-9 (Version None)
Quarter: 2004Q1

REPORT INFORMATION
  Report Type: 
  Country: None (occurrence: None)
  Receive Date: 20040323
  Receipt Date: 20040318
  Transmission Date: 20041129
  Serious: Yes (Hospitalization)
  Sender: FDA-Public Use
  Company Number: 03P-163-0237218-00

PATIENT
  Age: 66 Year
  Sex: Female
  Weight: 84.369 kg

DRUGS (7)
  1. DEPAKOTE [Suspect]
     Indication: BIPOLAR DISORDER
     Dosage: 1750 MG, 2 IN 1 D, PER ORAL; 1000 MG, 2 IN 1 D, PER ORAL; 1250 MG, 1 I N 1 D, PER ORAL
     Route: 048
     Dates: start: 20030101, end: 20030101
  2. DEPAKOTE [Suspect]
     Indication: BIPOLAR DISORDER
     Dosage: 1750 MG, 2 IN 1 D, PER ORAL; 1000 MG, 2 IN 1 D, PER ORAL; 1250 MG, 1 I N 1 D, PER ORAL
     Route: 048
     Dates: start: 20030101
  3. DEPAKOTE [Suspect]
     Indication: BIPOLAR DISORDER
     Dosage: 1750 MG, 2 IN 1 D, PER ORAL; 1000 MG, 2 IN 1 D, PER ORAL; 1250 MG, 1 I N 1 D, PER ORAL
     Route: 048
     Dates: start: 20030101
  4. TOLTERODINE TARTRATE [Suspect]
     Dosage: 2 IN 1 D
  5. RISPERIDONE [Suspect]
     Indication: HYPOMANIA
     Dosage: 3 MG, 1 IN 1 D, PER ORAL
     Route: 048
     Dates: start: 20030701, end: 20030729
  6. CLONAZEPAM [Concomitant]
  7. BENZATROPINE MESILATE [Concomitant]

REACTIONS (6)
  - GAIT DISTURBANCE [None]
  - HYPOMANIA [None]
  - MOVEMENT DISORDER [None]
  - MYALGIA [None]
  - OEDEMA PERIPHERAL [None]
  - TREMOR [None]
